FAERS Safety Report 22400504 (Version 1)
Quarter: 2023Q2

REPORT INFORMATION
  Report Type: Spontaneous
  Country: IT (occurrence: IT)
  Receive Date: 20230602
  Receipt Date: 20230602
  Transmission Date: 20230721
  Serious: Yes (Other)
  Sender: FDA-Public Use
  Company Number: IT-JNJFOC-20201106704

PATIENT
  Sex: Female

DRUGS (5)
  1. IFOSFAMIDE [Suspect]
     Active Substance: IFOSFAMIDE
     Indication: Bone giant cell tumour malignant
     Dosage: 14G/MQ CONTINUE INFUSION FOR 14DAYS EVERY 28DAYS
     Route: 041
     Dates: start: 201805
  2. IFOSFAMIDE [Suspect]
     Active Substance: IFOSFAMIDE
     Indication: Soft tissue sarcoma
  3. IFOSFAMIDE [Suspect]
     Active Substance: IFOSFAMIDE
     Indication: Disease progression
  4. DOXORUBICIN [Suspect]
     Active Substance: DOXORUBICIN
     Indication: Bone giant cell tumour malignant
     Dosage: 75 MG, ON DAY 1 EVERY THREE WEEKS
     Route: 042
     Dates: start: 201709
  5. DOXORUBICIN [Suspect]
     Active Substance: DOXORUBICIN
     Indication: Soft tissue sarcoma

REACTIONS (7)
  - Leukopenia [Unknown]
  - Neutropenia [Unknown]
  - Radiculopathy [Unknown]
  - Disease progression [Unknown]
  - Drug intolerance [Unknown]
  - Asthenia [Unknown]
  - Anaemia [Unknown]

NARRATIVE: CASE EVENT DATE: 20180101
